FAERS Safety Report 22200640 (Version 6)
Quarter: 2025Q3

REPORT INFORMATION
  Report Type: Report from Study
  Country: CA (occurrence: CA)
  Receive Date: 20230412
  Receipt Date: 20250903
  Transmission Date: 20251020
  Serious: Yes (Other)
  Sender: TAKEDA
  Company Number: CA-TAKEDA-2023TUS000577

PATIENT
  Sex: Female
  Weight: 50 kg

DRUGS (8)
  1. HUMAN IMMUNOGLOBULIN G [Suspect]
     Active Substance: HUMAN IMMUNOGLOBULIN G
     Indication: Primary immunodeficiency syndrome
     Dosage: 8 GRAM, 1/WEEK
     Dates: start: 20191213
  2. HUMAN IMMUNOGLOBULIN G [Suspect]
     Active Substance: HUMAN IMMUNOGLOBULIN G
     Indication: IgG deficiency
     Dosage: 7 GRAM, 1/WEEK
     Dates: start: 202107
  3. HUMAN IMMUNOGLOBULIN G [Suspect]
     Active Substance: HUMAN IMMUNOGLOBULIN G
     Indication: Pneumonia bacterial
     Dosage: 7 GRAM, 1/WEEK
  4. HUMAN IMMUNOGLOBULIN G [Suspect]
     Active Substance: HUMAN IMMUNOGLOBULIN G
     Dosage: 7 GRAM, 1/WEEK
  5. HUMAN IMMUNOGLOBULIN G [Suspect]
     Active Substance: HUMAN IMMUNOGLOBULIN G
     Dosage: 7 GRAM, 1/WEEK
  6. HUMAN IMMUNOGLOBULIN G [Suspect]
     Active Substance: HUMAN IMMUNOGLOBULIN G
     Dosage: 7 GRAM, 1/WEEK
  7. HYDROXYCHLOROQUINE [Concomitant]
     Active Substance: HYDROXYCHLOROQUINE
     Indication: Product used for unknown indication
  8. PLAQUENIL [Concomitant]
     Active Substance: HYDROXYCHLOROQUINE SULFATE

REACTIONS (16)
  - Pneumococcal infection [Unknown]
  - Nail discolouration [Unknown]
  - Blood immunoglobulin G decreased [Unknown]
  - Dermatitis contact [Unknown]
  - Allergic cough [Unknown]
  - Perfume sensitivity [Unknown]
  - Productive cough [Unknown]
  - Weight decreased [Unknown]
  - Breast mass [Unknown]
  - Menstruation irregular [Not Recovered/Not Resolved]
  - Weight fluctuation [Unknown]
  - Upper respiratory tract infection [Recovered/Resolved]
  - Hot flush [Unknown]
  - Chest pain [Unknown]
  - Eye pain [Recovered/Resolved]
  - Back pain [Unknown]
